FAERS Safety Report 6097027-3 (Version None)
Quarter: 2009Q1

REPORT INFORMATION
  Report Type: 
  Country: None (occurrence: None)
  Receive Date: 20090226
  Receipt Date: 20090226
  Transmission Date: 20090719
  Serious: No
  Sender: FDA-Public Use
  Company Number: None

PATIENT
  Age: 49 Year
  Sex: Female
  Weight: 121.1104 kg

DRUGS (2)
  1. VICODIN [Suspect]
     Indication: MYALGIA
     Dosage: 5/500 TID ORAL
     Route: 048
     Dates: start: 20090221
  2. VICODIN [Suspect]
     Indication: MYALGIA
     Dosage: 5/500 TID ORAL
     Route: 048
     Dates: start: 20090222

REACTIONS (1)
  - DRUG INEFFECTIVE [None]
